FAERS Safety Report 5654161-7 (Version None)
Quarter: 2008Q1

REPORT INFORMATION
  Report Type: 
  Country: None (occurrence: None)
  Receive Date: 20080306
  Receipt Date: 20080214
  Transmission Date: 20080703
  Serious: No
  Sender: FDA-Public Use
  Company Number: US-BOEHRINGER INGELHEIM GMBH, GERMANY-2008-BP-02386BP

PATIENT
  Sex: Male

DRUGS (6)
  1. ZANTAC 150 [Suspect]
     Indication: GASTROOESOPHAGEAL REFLUX DISEASE
     Route: 048
     Dates: start: 20080210
  2. ZEGRID [Concomitant]
     Indication: GASTROOESOPHAGEAL REFLUX DISEASE
  3. ATENOLOL [Concomitant]
     Indication: HYPERTENSION
  4. GEMFIBROZIL [Concomitant]
     Indication: BLOOD CHOLESTEROL INCREASED
  5. LOVASTATIN [Concomitant]
     Indication: BLOOD CHOLESTEROL INCREASED
  6. ASPIRIN [Concomitant]
     Indication: PROPHYLAXIS

REACTIONS (1)
  - SOMNOLENCE [None]
